FAERS Safety Report 9344653 (Version 2)
Quarter: 2013Q3

REPORT INFORMATION
  Report Type: Spontaneous
  Country: BR (occurrence: BR)
  Receive Date: 20130612
  Receipt Date: 20130820
  Transmission Date: 20140515
  Serious: No
  Sender: FDA-Public Use
  Company Number: PHHY2013BR059773

PATIENT
  Sex: Female

DRUGS (1)
  1. DIOVAN [Suspect]
     Dosage: 1 DF, (160 MG) IN THE MORNING
     Route: 048

REACTIONS (2)
  - Tinnitus [Unknown]
  - Dizziness [Recovering/Resolving]
